FAERS Safety Report 19326484 (Version 1)
Quarter: 2021Q2

REPORT INFORMATION
  Report Type: Spontaneous
  Country: PL (occurrence: PL)
  Receive Date: 20210528
  Receipt Date: 20210528
  Transmission Date: 20210717
  Serious: Yes (Death, Hospitalization, Other)
  Sender: FDA-Public Use
  Company Number: PL-B.I. PHARMACEUTICALS,INC./RIDGEFIELD-2021-BI-105952

PATIENT
  Age: 80 Year
  Sex: Female

DRUGS (1)
  1. PRADAXA [Suspect]
     Active Substance: DABIGATRAN ETEXILATE MESYLATE
     Indication: PRODUCT USED FOR UNKNOWN INDICATION

REACTIONS (24)
  - Blood urea increased [Fatal]
  - Ascites [Fatal]
  - Blood creatinine increased [Fatal]
  - Pupillary reflex impaired [Fatal]
  - CSF volume decreased [Fatal]
  - Areflexia [Fatal]
  - C-reactive protein increased [Fatal]
  - Pleural effusion [Fatal]
  - Coagulation time prolonged [Fatal]
  - Brain scan abnormal [Fatal]
  - Pancreatitis [Fatal]
  - Acute kidney injury [Fatal]
  - White blood cell count increased [Fatal]
  - Brain oedema [Fatal]
  - Cardiac failure [Fatal]
  - Cerebral haematoma [Fatal]
  - Cardiopulmonary failure [Fatal]
  - Upper gastrointestinal haemorrhage [Fatal]
  - General physical health deterioration [Fatal]
  - Brain death [Fatal]
  - Haemoglobin decreased [Fatal]
  - Cerebellar haematoma [Fatal]
  - Intraventricular haemorrhage [Fatal]
  - Central nervous system haemorrhage [Fatal]

NARRATIVE: CASE EVENT DATE: 20210420
